FAERS Safety Report 7329600-6 (Version None)
Quarter: 2011Q1

REPORT INFORMATION
  Report Type: 
  Country: None (occurrence: None)
  Receive Date: 20110303
  Receipt Date: 20110225
  Transmission Date: 20110831
  Serious: Yes (Hospitalization)
  Sender: FDA-Public Use
  Company Number: PHHO2009US15653

PATIENT
  Sex: Male

DRUGS (2)
  1. NEORAL [Concomitant]
     Indication: HEART TRANSPLANT
  2. ZORTRESS [Suspect]
     Indication: HEART TRANSPLANT
     Dosage: 0.75 MG, BID
     Route: 048
     Dates: start: 20080911

REACTIONS (3)
  - HERNIA REPAIR [None]
  - UMBILICAL HERNIA [None]
  - INCISIONAL HERNIA [None]
